FAERS Safety Report 20573052 (Version 1)
Quarter: 2022Q1

REPORT INFORMATION
  Report Type: Report from Study
  Country: DO (occurrence: DO)
  Receive Date: 20220309
  Receipt Date: 20220309
  Transmission Date: 20220423
  Serious: Yes (Other)
  Sender: FDA-Public Use
  Company Number: DO-NOVARTISPH-NVSC2020DO251362

PATIENT
  Age: 55 Year
  Sex: Male

DRUGS (4)
  1. GILENYA [Suspect]
     Active Substance: FINGOLIMOD HYDROCHLORIDE
     Indication: Relapsing-remitting multiple sclerosis
     Dosage: 0.5 MG, QD
     Route: 048
     Dates: start: 20200909
  2. GILENYA [Suspect]
     Active Substance: FINGOLIMOD HYDROCHLORIDE
     Dosage: 0.5 MG, QD
     Route: 048
     Dates: start: 20220214
  3. EUTHYROX [Concomitant]
     Active Substance: LEVOTHYROXINE SODIUM
     Indication: Product used for unknown indication
     Dosage: UNK
     Route: 065
  4. LEVOTHYROXINE SODIUM [Concomitant]
     Active Substance: LEVOTHYROXINE SODIUM
     Indication: Thyroid disorder
     Dosage: 50 MG
     Route: 065

REACTIONS (7)
  - Hernia [Unknown]
  - Bradycardia [Recovered/Resolved]
  - Insomnia [Unknown]
  - Blood pressure increased [Recovered/Resolved]
  - Heart rate decreased [Recovered/Resolved]
  - Blood pressure increased [Recovered/Resolved]
  - Dizziness [Recovered/Resolved]

NARRATIVE: CASE EVENT DATE: 20200909
